FAERS Safety Report 8241171-9 (Version None)
Quarter: 2012Q1

REPORT INFORMATION
  Report Type: 
  Country: None (occurrence: None)
  Receive Date: 20120328
  Receipt Date: 20120321
  Transmission Date: 20120608
  Serious: Yes (Other)
  Sender: FDA-Public Use
  Company Number: US-BAYER-2011-107488

PATIENT
  Age: 25 Year
  Sex: Female
  Weight: 79.365 kg

DRUGS (7)
  1. MULTI-VITAMIN [Concomitant]
  2. YASMIN [Suspect]
     Indication: CONTRACEPTION
     Dosage: UNK
     Dates: start: 20070528, end: 20080801
  3. LEVBID [Concomitant]
  4. NEXIUM [Concomitant]
  5. WELLBUTRIN [Concomitant]
  6. DROSPIRENONE AND ETHINYL ESTRADIOL [Suspect]
     Indication: CONTRACEPTION
     Dosage: UNK
     Dates: start: 20080928, end: 20100501
  7. ASCORBIC ACID [Concomitant]

REACTIONS (5)
  - GALLBLADDER INJURY [None]
  - INJURY [None]
  - PAIN [None]
  - ABDOMINAL PAIN [None]
  - BILIARY DYSKINESIA [None]
